FAERS Safety Report 18593020 (Version 1)
Quarter: 2020Q4

REPORT INFORMATION
  Report Type: Spontaneous
  Country: US (occurrence: US)
  Receive Date: 20201208
  Receipt Date: 20201208
  Transmission Date: 20210114
  Serious: Yes (Other)
  Sender: FDA-Public Use
  Company Number: US-HQ SPECIALTY-US-2020INT000148

PATIENT
  Age: 35 Year
  Sex: Male

DRUGS (2)
  1. DEXMEDETOMIDINE HYDROCHLORIDE. [Suspect]
     Active Substance: DEXMEDETOMIDINE HYDROCHLORIDE
     Indication: SEDATIVE THERAPY
     Dosage: INITIATED AT 0.4 MCG/KG/H AND TITRATED TO 0.8 MCG/KG/H
     Route: 065
  2. IBUPROFEN. [Concomitant]
     Active Substance: IBUPROFEN
     Indication: MUSCULOSKELETAL PAIN
     Dosage: LOW-DOSE, AS NEEDED
     Route: 065

REACTIONS (6)
  - Restlessness [Unknown]
  - Withdrawal hypertension [Unknown]
  - Drug withdrawal syndrome [Unknown]
  - Tachycardia [Unknown]
  - Anxiety [Unknown]
  - Hyperhidrosis [Unknown]
